FAERS Safety Report 23300777 (Version 3)
Quarter: 2023Q4

REPORT INFORMATION
  Report Type: Spontaneous
  Country: US (occurrence: US)
  Receive Date: 20231215
  Receipt Date: 20231228
  Transmission Date: 20240110
  Serious: No
  Sender: FDA-Public Use
  Company Number: US-GLAXOSMITHKLINE-US2023AMR171197

PATIENT
  Age: 64 Year
  Sex: Female

DRUGS (1)
  1. ZEJULA [Suspect]
     Active Substance: NIRAPARIB
     Indication: Retroperitoneal cancer
     Dosage: 200 MG, QD
     Dates: start: 20231202

REACTIONS (5)
  - Feeling hot [Unknown]
  - Swelling face [Unknown]
  - Pruritus [Recovering/Resolving]
  - Insomnia [Unknown]
  - Hypoaesthesia [Recovering/Resolving]

NARRATIVE: CASE EVENT DATE: 20231201
